FAERS Safety Report 4897242-8 (Version None)
Quarter: 2006Q1

REPORT INFORMATION
  Report Type: 
  Country: None (occurrence: None)
  Receive Date: 20060127
  Receipt Date: 20060105
  Transmission Date: 20060701
  Serious: Yes (Hospitalization, Other)
  Sender: FDA-Public Use
  Company Number: US_0509122336

PATIENT
  Age: 46 Year
  Sex: Female
  Weight: 85.5 kg

DRUGS (7)
  1. ZYPREXA [Suspect]
     Dosage: 2.5 MG, EACH MORNING, ORAL; 2.5 MG, EACH EVENING, ORAL; 10 MG, EACH EVENING, UNK
     Route: 048
     Dates: start: 20000919, end: 20001106
  2. ZYPREXA [Suspect]
     Dosage: 2.5 MG, EACH MORNING, ORAL; 2.5 MG, EACH EVENING, ORAL; 10 MG, EACH EVENING, UNK
     Route: 048
     Dates: start: 20000919, end: 20001106
  3. ZYPREXA [Suspect]
     Dosage: 2.5 MG, EACH MORNING, ORAL; 2.5 MG, EACH EVENING, ORAL; 10 MG, EACH EVENING, UNK
     Route: 048
     Dates: start: 20001106, end: 20010105
  4. PAXIL [Concomitant]
  5. QUININE SULFATE [Concomitant]
  6. ORPHENADRINE CITRATE [Concomitant]
  7. VIOXX [Concomitant]

REACTIONS (9)
  - BILIARY DYSKINESIA [None]
  - CHOLECYSTITIS [None]
  - CHOLELITHIASIS [None]
  - DIABETES MELLITUS [None]
  - GLYCOSURIA [None]
  - IMPAIRED GASTRIC EMPTYING [None]
  - PANCREATITIS [None]
  - SKIN DISORDER [None]
  - STAPHYLOCOCCAL INFECTION [None]
